FAERS Safety Report 9567507 (Version 2)
Quarter: 2013Q3

REPORT INFORMATION
  Report Type: Spontaneous
  Country: US (occurrence: US)
  Receive Date: 20130930
  Receipt Date: 20130930
  Transmission Date: 20140515
  Serious: No
  Sender: FDA-Public Use
  Company Number: US-AMGEN-KDL060731

PATIENT
  Age: 58 Year
  Sex: Female

DRUGS (1)
  1. ENBREL [Suspect]
     Indication: RHEUMATOID ARTHRITIS
     Dosage: 25 MG, QWK
     Route: 058
     Dates: start: 20000101

REACTIONS (8)
  - Emphysema [Unknown]
  - Dyspnoea [Unknown]
  - Malaise [Unknown]
  - Infection [Unknown]
  - Urinary tract infection [Unknown]
  - Vulvovaginal mycotic infection [Unknown]
  - Bronchitis [Unknown]
  - Anaemia [Unknown]
